FAERS Safety Report 6182319-X (Version None)
Quarter: 2009Q2

REPORT INFORMATION
  Report Type: 
  Country: None (occurrence: None)
  Receive Date: 20090505
  Receipt Date: 20090505
  Transmission Date: 20091009
  Serious: Yes (Other)
  Sender: FDA-Public Use
  Company Number: None

PATIENT
  Sex: Female
  Weight: 12.7007 kg

DRUGS (2)
  1. MIRALAX [Suspect]
     Indication: ABDOMINAL DISTENSION
     Dosage: 17 G -ONE CAP TO WHITE LINE- ONCE DAILY PO
     Route: 048
  2. MIRALAX [Suspect]
     Indication: CONSTIPATION
     Dosage: 17 G -ONE CAP TO WHITE LINE- ONCE DAILY PO
     Route: 048

REACTIONS (15)
  - ABASIA [None]
  - ANXIETY [None]
  - ARTHRALGIA [None]
  - BACK PAIN [None]
  - CRYING [None]
  - FALL [None]
  - GAIT DISTURBANCE [None]
  - INJURY [None]
  - IRRITABILITY [None]
  - MIDDLE INSOMNIA [None]
  - MOVEMENT DISORDER [None]
  - PAIN [None]
  - PAIN IN EXTREMITY [None]
  - SCREAMING [None]
  - TREMOR [None]
